FAERS Safety Report 8820573 (Version 1)
Quarter: 2012Q4

REPORT INFORMATION
  Report Type: 
  Country: HU (occurrence: HU)
  Receive Date: 20121002
  Receipt Date: 20121002
  Transmission Date: 20130627
  Serious: Yes (Other)
  Sender: FDA-Public Use
  Company Number: HU-PFIZER INC-2012242879

PATIENT
  Sex: Male

DRUGS (1)
  1. CHAMPIX [Suspect]
     Dosage: 1 mg, UNK

REACTIONS (4)
  - Swollen tongue [Unknown]
  - Tonsillar disorder [Unknown]
  - Mouth ulceration [Unknown]
  - Gingival pain [Unknown]
